FAERS Safety Report 8257290-7 (Version None)
Quarter: 2012Q2

REPORT INFORMATION
  Report Type: 
  Country: None (occurrence: None)
  Receive Date: 20120403
  Receipt Date: 20120323
  Transmission Date: 20120825
  Serious: Yes (Hospitalization)
  Sender: FDA-Public Use
  Company Number: CA-JNJFOC-20120304632

PATIENT
  Sex: Female
  Weight: 81 kg

DRUGS (7)
  1. IMURAN [Concomitant]
     Route: 065
  2. HYDROMORPHONE HCL [Concomitant]
     Route: 065
  3. ONDANSETRON [Concomitant]
     Route: 065
  4. LYRICA [Concomitant]
     Route: 065
  5. REMICADE [Suspect]
     Indication: CROHN'S DISEASE
     Route: 042
     Dates: start: 20070201
  6. AMITRIPTYLINE HCL [Concomitant]
     Route: 065
  7. METOCLOPRAMIDE [Concomitant]
     Route: 065

REACTIONS (3)
  - ADVERSE DRUG REACTION [None]
  - HERPES ZOSTER [None]
  - HALLUCINATION [None]
